FAERS Safety Report 14690630 (Version 2)
Quarter: 2018Q2

REPORT INFORMATION
  Report Type: Spontaneous
  Country: FR (occurrence: FR)
  Receive Date: 20180328
  Receipt Date: 20180412
  Transmission Date: 20180711
  Serious: Yes (Life-Threatening, Hospitalization, Other)
  Sender: FDA-Public Use
  Company Number: FR-009507513-1802FRA007999

PATIENT
  Age: 54 Year
  Sex: Male
  Weight: 95 kg

DRUGS (1)
  1. ESMERON [Suspect]
     Active Substance: ROCURONIUM BROMIDE
     Indication: ENDOTRACHEAL INTUBATION
     Dosage: 100 MG, ONCE
     Route: 042
     Dates: start: 20180126, end: 20180126

REACTIONS (1)
  - Anaphylactic shock [Unknown]

NARRATIVE: CASE EVENT DATE: 20180126
